FAERS Safety Report 11270553 (Version 1)
Quarter: 2015Q3

REPORT INFORMATION
  Report Type: Spontaneous
  Country: JP (occurrence: JP)
  Receive Date: 20150714
  Receipt Date: 20150714
  Transmission Date: 20151125
  Serious: Yes (Death, Hospitalization, Other)
  Sender: FDA-Public Use
  Company Number: PHHY2015JP081346

PATIENT
  Age: 27 Year
  Sex: Female

DRUGS (2)
  1. AMOXICILLIN. [Suspect]
     Active Substance: AMOXICILLIN
     Indication: STEVENS-JOHNSON SYNDROME
     Route: 048
  2. AZITHROMYCIN [Concomitant]
     Active Substance: AZITHROMYCIN ANHYDROUS
     Indication: CHRONIC RESPIRATORY DISEASE
     Route: 065

REACTIONS (7)
  - Pyrexia [Unknown]
  - Stevens-Johnson syndrome [Unknown]
  - Septic shock [Fatal]
  - Organising pneumonia [Unknown]
  - Dyspnoea exertional [Unknown]
  - Respiratory failure [Fatal]
  - Pneumothorax [Unknown]
